FAERS Safety Report 26052472 (Version 3)
Quarter: 2025Q4

REPORT INFORMATION
  Report Type: Report from Study
  Country: CA (occurrence: CA)
  Receive Date: 20251117
  Receipt Date: 20251208
  Transmission Date: 20260118
  Serious: Yes (Other)
  Sender: ROCHE
  Company Number: CA-ROCHE-10000383840

PATIENT
  Age: 36 Year
  Sex: Female

DRUGS (11)
  1. HERCEPTIN [Suspect]
     Active Substance: TRASTUZUMAB
     Indication: Breast cancer
     Dosage: ON HOLD
     Route: 065
     Dates: start: 20250627
  2. PERJETA [Suspect]
     Active Substance: PERTUZUMAB
     Indication: Breast cancer
     Dosage: LOADING DOSE ON HOLD
     Route: 042
     Dates: start: 20250905, end: 20250905
  3. PERJETA [Suspect]
     Active Substance: PERTUZUMAB
     Route: 042
     Dates: start: 20251017
  4. BISOPROLOL [Suspect]
     Active Substance: BISOPROLOL
     Indication: Breast cancer
     Route: 065
     Dates: start: 2025
  5. CANDESARTAN [Suspect]
     Active Substance: CANDESARTAN
     Indication: Breast cancer
     Route: 065
     Dates: start: 2025, end: 20251023
  6. PEGFILGRASTIM [Concomitant]
     Active Substance: PEGFILGRASTIM
     Indication: Product used for unknown indication
  7. BILASTINE [Concomitant]
     Active Substance: BILASTINE
     Indication: Product used for unknown indication
  8. HYDROMORPHONE [Concomitant]
     Active Substance: HYDROMORPHONE
     Indication: Product used for unknown indication
  9. TYLENOL [Concomitant]
     Active Substance: ACETAMINOPHEN
     Indication: Product used for unknown indication
  10. PACLITAXEL [Concomitant]
     Active Substance: PACLITAXEL
     Indication: Breast cancer
  11. ZOPICLONE [Concomitant]
     Active Substance: ZOPICLONE
     Indication: Insomnia
     Dosage: 1/2 TO 1 TABLET AS NEEDED
     Dates: start: 2025

REACTIONS (13)
  - Drug hypersensitivity [Unknown]
  - Ejection fraction decreased [Recovered/Resolved]
  - Diarrhoea [Recovering/Resolving]
  - Cardiac dysfunction [Unknown]
  - Cardiac disorder [Unknown]
  - Hypersensitivity [Unknown]
  - Hypotension [Unknown]
  - Fatigue [Unknown]
  - Dizziness [Unknown]
  - Pruritus [Unknown]
  - Cardiac disorder [Recovering/Resolving]
  - Rash [Unknown]
  - Insomnia [Unknown]
